FAERS Safety Report 9098183 (Version 1)
Quarter: 2013Q1

REPORT INFORMATION
  Report Type: Spontaneous
  Country: US (occurrence: US)
  Receive Date: 20130213
  Receipt Date: 20130213
  Transmission Date: 20140127
  Serious: Yes (Death)
  Sender: FDA-Public Use
  Company Number: US-COVIDIEN/TYCO HEALTHCARE/MALLINCKRODT-T201204573

PATIENT
  Sex: Male

DRUGS (1)
  1. GABLOFEN [Suspect]
     Indication: MUSCLE SPASTICITY
     Dosage: 914.3 MCG/DAY
     Route: 037

REACTIONS (4)
  - Multiple sclerosis [Fatal]
  - Aspiration [Fatal]
  - Infection [Fatal]
  - Asthenia [Fatal]
